FAERS Safety Report 19964578 (Version 2)
Quarter: 2021Q4

REPORT INFORMATION
  Report Type: Spontaneous
  Country: ES (occurrence: ES)
  Receive Date: 20211018
  Receipt Date: 20211021
  Transmission Date: 20220303
  Serious: Yes (Death, Other)
  Sender: FDA-Public Use
  Company Number: ES-002147023-NVSC2021ES132090

PATIENT
  Age: 64 Year
  Sex: Female

DRUGS (2)
  1. FINGOLIMOD [Suspect]
     Active Substance: FINGOLIMOD
     Indication: Relapsing-remitting multiple sclerosis
     Dosage: 0.5 MILLIGRAM, QD (0.5 MG, QD)
     Route: 048
     Dates: start: 2013, end: 2014
  2. FINGOLIMOD [Suspect]
     Active Substance: FINGOLIMOD
     Indication: Multiple sclerosis
     Dosage: UNK UNK, NO TREATMENT
     Route: 048

REACTIONS (9)
  - Gastrointestinal haemorrhage [Fatal]
  - Metastases to pancreas [Unknown]
  - Metastases to breast [Unknown]
  - Metastases to bone [Unknown]
  - Metastases to retroperitoneum [Unknown]
  - Metastases to stomach [Unknown]
  - Metastases to lymph nodes [Unknown]
  - Neuroendocrine carcinoma of the skin [Not Recovered/Not Resolved]
  - Lymphopenia [Unknown]
